FAERS Safety Report 25427774 (Version 1)
Quarter: 2025Q2

REPORT INFORMATION
  Report Type: Spontaneous
  Country: NZ (occurrence: NZ)
  Receive Date: 20250612
  Receipt Date: 20250612
  Transmission Date: 20250717
  Serious: Yes (Other)
  Sender: MYLAN
  Company Number: NZ-MYLANLABS-2025M1047456

PATIENT
  Age: 44 Year
  Sex: Female

DRUGS (4)
  1. CLOZARIL [Suspect]
     Active Substance: CLOZAPINE
     Indication: Schizophrenia
     Dates: start: 20250514, end: 20250530
  2. CLOZARIL [Suspect]
     Active Substance: CLOZAPINE
     Route: 048
     Dates: start: 20250514, end: 20250530
  3. CLOZARIL [Suspect]
     Active Substance: CLOZAPINE
     Route: 048
     Dates: start: 20250514, end: 20250530
  4. CLOZARIL [Suspect]
     Active Substance: CLOZAPINE
     Dates: start: 20250514, end: 20250530

REACTIONS (5)
  - Myocarditis [Unknown]
  - White blood cell count increased [Unknown]
  - Neutrophil count increased [Recovering/Resolving]
  - Platelet count increased [Unknown]
  - Lymphocyte count decreased [Recovering/Resolving]

NARRATIVE: CASE EVENT DATE: 20250521
